FAERS Safety Report 25305325 (Version 1)
Quarter: 2025Q2

REPORT INFORMATION
  Report Type: Spontaneous
  Country: US (occurrence: US)
  Receive Date: 20250513
  Receipt Date: 20250513
  Transmission Date: 20250717
  Serious: No
  Sender: TOLMAR
  Company Number: US-TOLMAR, INC.-25US057300

PATIENT
  Age: 78 Year
  Sex: Male

DRUGS (2)
  1. ELIGARD [Suspect]
     Active Substance: LEUPROLIDE ACETATE
     Indication: Prostate cancer
     Dosage: 22.5 MILLIGRAM, Q 3 MONTH, ?EXPIRATION DATES: SEP-2026; AUG-2026; AUG-2026 ?NDC: 6293522710 GTIN: 00
     Route: 058
     Dates: start: 20250303
  2. DEVICE [Suspect]
     Active Substance: DEVICE
     Indication: Prostate cancer
     Dosage: 22.5 MILLIGRAM, Q 3 MONTH, ?EXPIRATION DATES: SEP-2026; AUG-2026; AUG-2026; NDC: 6293522710 GTIN: 00
     Route: 058

REACTIONS (7)
  - Intercepted product preparation error [Unknown]
  - Wrong technique in product usage process [Unknown]
  - Product packaging quantity issue [Unknown]
  - Device occlusion [Unknown]
  - Syringe issue [Unknown]
  - Liquid product physical issue [Unknown]
  - Product colour issue [Unknown]

NARRATIVE: CASE EVENT DATE: 20250303
